FAERS Safety Report 5340000-0 (Version None)
Quarter: 2007Q2

REPORT INFORMATION
  Report Type: 
  Country: None (occurrence: None)
  Receive Date: 20070531
  Receipt Date: 20070423
  Transmission Date: 20071010
  Serious: Yes (Other)
  Sender: FDA-Public Use
  Company Number: CH-ROCHE-352559

PATIENT
  Age: 46 Year
  Sex: Male

DRUGS (11)
  1. PEG-INTERFERON ALFA 2A (RO 25-8310) [Suspect]
     Dosage: FORMULATION REPORTED AS PRE-FILLED SYRINGE.
     Route: 058
     Dates: start: 20030227, end: 20031023
  2. RIBAVIRIN [Suspect]
     Dosage: TAKEN IN 2 DIVIDED DOSES 2 TABLETS IN THE MORNING AND 2 TABLETS IN THE EVENING.
     Route: 048
     Dates: start: 20030227, end: 20031023
  3. MYCOPHENOLATE MOFETIL [Suspect]
     Route: 065
     Dates: start: 20010410, end: 20031016
  4. MYCOPHENOLATE MOFETIL [Suspect]
     Route: 065
     Dates: start: 20031023
  5. MYCOPHENOLATE MOFETIL [Suspect]
     Route: 065
     Dates: start: 20031106
  6. TACROLIMUS [Suspect]
     Route: 065
     Dates: start: 20010410, end: 20011016
  7. TACROLIMUS [Suspect]
     Route: 065
     Dates: start: 20031023
  8. TACROLIMUS [Suspect]
     Route: 065
     Dates: start: 20031112
  9. ENALAPRIL MALEATE [Concomitant]
     Dates: start: 20020627
  10. HUMALOG [Concomitant]
     Dates: start: 20010110
  11. INSULIN LENTE [Concomitant]
     Dates: start: 20010110

REACTIONS (2)
  - GASTROENTERITIS CRYPTOSPORIDIAL [None]
  - PANCYTOPENIA [None]
